FAERS Safety Report 8854801 (Version 1)
Quarter: 2012Q4

REPORT INFORMATION
  Report Type: 
  Country: BR (occurrence: BR)
  Receive Date: 20121023
  Receipt Date: 20121023
  Transmission Date: 20130627
  Serious: Yes (Other)
  Sender: FDA-Public Use
  Company Number: PHHY2012BR094550

PATIENT
  Sex: Female

DRUGS (2)
  1. FORASEQ [Suspect]
     Dosage: Maternal dose: 1 dose, daily
     Route: 064
  2. FORASEQ [Suspect]

REACTIONS (2)
  - Asthma [Unknown]
  - Foetal exposure timing unspecified [Unknown]
